FAERS Safety Report 6709224-1 (Version None)
Quarter: 2010Q2

REPORT INFORMATION
  Report Type: 
  Country: None (occurrence: None)
  Receive Date: 20100504
  Receipt Date: 20100427
  Transmission Date: 20101027
  Serious: Yes (Hospitalization)
  Sender: FDA-Public Use
  Company Number: FR-SANOFI-AVENTIS-2010SA024661

PATIENT
  Age: 69 Year
  Sex: Male

DRUGS (2)
  1. PLAVIX [Suspect]
     Indication: STENT PLACEMENT
     Route: 048
     Dates: start: 20100301, end: 20100301
  2. ASPIRIN [Concomitant]
     Indication: STENT PLACEMENT
     Dates: start: 20100301

REACTIONS (1)
  - HEPATITIS [None]
